FAERS Safety Report 6360902-6 (Version None)
Quarter: 2009Q3

REPORT INFORMATION
  Report Type: 
  Country: None (occurrence: None)
  Receive Date: 20090916
  Receipt Date: 20090916
  Transmission Date: 20100115
  Serious: Yes (Other)
  Sender: FDA-Public Use
  Company Number: None

PATIENT
  Age: 84 Year
  Sex: Female

DRUGS (1)
  1. FERROUS SUL ELX [Suspect]
     Indication: ANAEMIA
     Dosage: 200 MG; TID; PO
     Route: 048
     Dates: start: 20070629, end: 20090703

REACTIONS (1)
  - URTICARIA [None]
